FAERS Safety Report 4865859-2 (Version None)
Quarter: 2005Q4

REPORT INFORMATION
  Report Type: 
  Country: None (occurrence: None)
  Receive Date: 20051220
  Receipt Date: 20051110
  Transmission Date: 20060501
  Serious: Yes (Other)
  Sender: FDA-Public Use
  Company Number: 2005151429

PATIENT
  Age: 9 Year
  Sex: Male

DRUGS (1)
  1. GENOTROPIN [Suspect]
     Indication: HYPOPITUITARISM

REACTIONS (5)
  - ARNOLD-CHIARI MALFORMATION [None]
  - BRAIN HERNIATION [None]
  - COORDINATION ABNORMAL [None]
  - DIZZINESS [None]
  - TREMOR [None]
